FAERS Safety Report 16418721 (Version 1)
Quarter: 2019Q2

REPORT INFORMATION
  Report Type: Spontaneous
  Country: US (occurrence: US)
  Receive Date: 20190612
  Receipt Date: 20190612
  Transmission Date: 20190711
  Serious: Yes (Other)
  Sender: FDA-Public Use
  Company Number: US-ACCORD-042466

PATIENT
  Age: 55 Year
  Sex: Male

DRUGS (1)
  1. METHOTREXATE. [Suspect]
     Active Substance: METHOTREXATE
     Indication: ACUTE LYMPHOCYTIC LEUKAEMIA
     Dosage: RECEIVED CYCLE 04 WITH HIGH DOSE METHOTREXATE THERAPY

REACTIONS (3)
  - Drug level increased [Recovering/Resolving]
  - Toxicity to various agents [Unknown]
  - Acute kidney injury [Unknown]
